FAERS Safety Report 19471751 (Version 1)
Quarter: 2021Q2

REPORT INFORMATION
  Report Type: Spontaneous
  Country: BR (occurrence: BR)
  Receive Date: 20210628
  Receipt Date: 20210628
  Transmission Date: 20210717
  Serious: Yes (Other)
  Sender: FDA-Public Use
  Company Number: BR-BAXTER-2021BAX017247

PATIENT
  Age: 36 Year
  Sex: Female
  Weight: 59 kg

DRUGS (9)
  1. CLORETO DE S?DIO ? BAXTER [Suspect]
     Active Substance: SODIUM CHLORIDE
     Dosage: AC PROTOCOL: FAULDOXO 100 MG + 0.9% SODIUM CHLORIDE 100 ML
     Route: 065
  2. FAULDOXO [Suspect]
     Active Substance: DOXORUBICIN HYDROCHLORIDE
     Indication: BREAST CANCER
     Dosage: AC PROTOCOL: FAULDOXO 100 MG + SODIUM CHLORIDE 100 ML
     Route: 065
  3. KYTRIL [Concomitant]
     Active Substance: GRANISETRON HYDROCHLORIDE
     Indication: CHEMOTHERAPY SIDE EFFECT PROPHYLAXIS
     Dosage: GRANISETRON 3 MG + 0.9% SODIUM CHLORIDE 100 ML
     Route: 042
  4. DEXAMETHASONE. [Concomitant]
     Active Substance: DEXAMETHASONE
     Indication: CHEMOTHERAPY SIDE EFFECT PROPHYLAXIS
     Dosage: GENERIC NAME ? TEUTO
     Route: 042
  5. GENUXAL [Suspect]
     Active Substance: CYCLOPHOSPHAMIDE
     Indication: BREAST CANCER
     Dosage: GENUXAL 1000 MG + 0.9% SODIUM CHLORIDE 500 ML, AC PROTOCOL
     Route: 065
     Dates: start: 20210506
  6. CLORETO DE S?DIO ? BAXTER [Suspect]
     Active Substance: SODIUM CHLORIDE
     Dosage: DOSE RE?INTRODUCED; GENUXAL + 0.9% SODIUM CHLORIDE
     Route: 065
  7. CLORETO DE S?DIO ? BAXTER [Suspect]
     Active Substance: SODIUM CHLORIDE
     Indication: MEDICATION DILUTION
     Dosage: AC PROTOCOL; GENUXAL 1000 MG + 0.9% SODIUM CHLORIDE 500 ML
     Route: 065
     Dates: start: 20210506
  8. SODIUM CHLORIDE. [Concomitant]
     Active Substance: SODIUM CHLORIDE
     Indication: MEDICATION DILUTION
     Dosage: GRANISETRON 3 MG + 0.9% SODIUM CHLORIDE 100 ML
     Route: 042
  9. GENUXAL [Suspect]
     Active Substance: CYCLOPHOSPHAMIDE
     Dosage: DOSE RE?INTRODUCED; GENUXAL + 0.9% SODIUM CHLORIDE
     Route: 065

REACTIONS (2)
  - Throat irritation [Recovered/Resolved]
  - Pruritus [Recovered/Resolved]

NARRATIVE: CASE EVENT DATE: 20210506
